FAERS Safety Report 16630271 (Version 1)
Quarter: 2019Q3

REPORT INFORMATION
  Report Type: Spontaneous
  Country: US (occurrence: US)
  Receive Date: 20190725
  Receipt Date: 20190725
  Transmission Date: 20191004
  Serious: No
  Sender: FDA-Public Use
  Company Number: US-TEVA-2018-US-943472

PATIENT
  Age: 7 Year
  Sex: Male

DRUGS (1)
  1. GRISEOFULVIN. [Suspect]
     Active Substance: GRISEOFULVIN
     Indication: TINEA CAPITIS
     Route: 048

REACTIONS (1)
  - Headache [Unknown]
